FAERS Safety Report 11962034 (Version 3)
Quarter: 2016Q1

REPORT INFORMATION
  Report Type: Spontaneous
  Country: DE (occurrence: DE)
  Receive Date: 20160126
  Receipt Date: 20160216
  Transmission Date: 20160526
  Serious: Yes (Life-Threatening, Hospitalization)
  Sender: FDA-Public Use
  Company Number: DE-ROCHE-1700498

PATIENT
  Age: 62 Year
  Sex: Male
  Weight: 73.6 kg

DRUGS (2)
  1. ZELBORAF [Suspect]
     Active Substance: VEMURAFENIB
     Indication: ERDHEIM-CHESTER DISEASE
     Route: 048
     Dates: start: 20160109, end: 20160126
  2. VALINE [Concomitant]
     Active Substance: VALINE

REACTIONS (5)
  - Burning sensation [Unknown]
  - Spinocerebellar disorder [Unknown]
  - Immune thrombocytopenic purpura [Recovered/Resolved]
  - Rash generalised [Recovered/Resolved]
  - Haemorrhage [Unknown]

NARRATIVE: CASE EVENT DATE: 20160123
